FAERS Safety Report 8734515 (Version 2)
Quarter: 2012Q4

REPORT INFORMATION
  Report Type: Spontaneous
  Country: US (occurrence: None)
  Receive Date: 20120802
  Receipt Date: 20120822
  Transmission Date: 20130627
  Serious: Yes (Hospitalization)
  Sender: FDA-Public Use
  Company Number: ALK_02764_2012

PATIENT
  Age: 27 Year
  Sex: Female
  Weight: 56.7 kg

DRUGS (6)
  1. VIVITROL [Suspect]
     Indication: DRUG DEPENDENCE
     Dosage: qmo
     Route: 030
     Dates: start: 20120714
  2. SINEQUAN [Concomitant]
  3. IBUPROFEN [Concomitant]
  4. NEURONTIN [Concomitant]
  5. FLEXERIL [Concomitant]
  6. SEROQUEL [Concomitant]

REACTIONS (16)
  - Tremor [None]
  - Dysphemia [None]
  - Incoherent [None]
  - Fall [None]
  - Injection site reaction [None]
  - Injection site induration [None]
  - Psychiatric symptom [None]
  - Motor dysfunction [None]
  - Drug screen positive [None]
  - Drug dependence [None]
  - Withdrawal syndrome [None]
  - Adverse reaction [None]
  - Injection site mass [None]
  - Injection site pain [None]
  - Drug abuse [None]
  - Amnesia [None]
